FAERS Safety Report 8046022-3 (Version None)
Quarter: 2012Q1

REPORT INFORMATION
  Report Type: 
  Country: None (occurrence: None)
  Receive Date: 20120113
  Receipt Date: 20120111
  Transmission Date: 20120608
  Serious: No
  Sender: FDA-Public Use
  Company Number: US-PFIZER INC-2012009362

PATIENT
  Sex: Female

DRUGS (3)
  1. TOPAMAX [Concomitant]
     Dosage: UNK
  2. CHANTIX [Suspect]
     Indication: SMOKING CESSATION THERAPY
     Dosage: UNK
     Route: 048
  3. XANAX [Concomitant]
     Dosage: UNK

REACTIONS (1)
  - NERVOUSNESS [None]
